FAERS Safety Report 9266962 (Version 2)
Quarter: 2013Q2

REPORT INFORMATION
  Report Type: Spontaneous
  Country: US (occurrence: US)
  Receive Date: 20130502
  Receipt Date: 20130510
  Transmission Date: 20140414
  Serious: No
  Sender: FDA-Public Use
  Company Number: US-PFIZER INC-2013134583

PATIENT
  Age: 44 Year
  Sex: Male
  Weight: 79.37 kg

DRUGS (2)
  1. LEVOTHYROXINE SODIUM [Suspect]
     Indication: HYPOTHYROIDISM
     Dosage: 150 UG, 1X/DAY
     Route: 048
     Dates: start: 201304
  2. ESCITALOPRAM [Concomitant]
     Indication: ANXIETY
     Dosage: UNK

REACTIONS (5)
  - Fatigue [Unknown]
  - Feeling abnormal [Unknown]
  - Flushing [Unknown]
  - Disturbance in attention [Unknown]
  - Drug ineffective [Unknown]
